FAERS Safety Report 15290656 (Version 1)
Quarter: 2018Q4

REPORT INFORMATION
  Report Type: Report from Study
  Country: ES (occurrence: ES)
  Receive Date: 20180817
  Receipt Date: 20180817
  Transmission Date: 20190204
  Serious: Yes (Hospitalization)
  Sender: FDA-Public Use
  Company Number: ES-TEVA-2018-ES-943282

PATIENT
  Age: 15 Year
  Sex: Male
  Weight: 53.6 kg

DRUGS (8)
  1. METOTREXATO (418A) [Suspect]
     Active Substance: METHOTREXATE
     Indication: ACUTE LYMPHOCYTIC LEUKAEMIA RECURRENT
     Dosage: 1555 MILLIGRAM DAILY;
     Route: 042
     Dates: start: 20170815, end: 20170815
  2. ERWINA - ERWINASE 10.000 UI INYECTABLE [REINO UNIDO] [Suspect]
     Active Substance: ASPARAGINASE
     Indication: ACUTE LYMPHOCYTIC LEUKAEMIA RECURRENT
     Route: 030
     Dates: start: 20170803, end: 20170830
  3. DEXAMETASONA KERN PHARMA 4 MG/ML SOLUCION INYECTABLE EFG , 3 AMPOLLAS [Suspect]
     Active Substance: DEXAMETHASONE
     Indication: ACUTE LYMPHOCYTIC LEUKAEMIA RECURRENT
     Route: 042
     Dates: start: 20170814, end: 20170818
  4. LEDERFOLIN 15 MG COMPRIMIDOS, 10 COMPRIMIDOS [Concomitant]
     Active Substance: LEUCOVORIN CALCIUM
     Indication: PROPHYLAXIS
     Route: 048
     Dates: start: 20170816, end: 20170817
  5. VINCRISTINA SULFATO (809SU) [Suspect]
     Active Substance: VINCRISTINE SULFATE
     Indication: ACUTE LYMPHOCYTIC LEUKAEMIA RECURRENT
     Route: 042
     Dates: start: 20170804, end: 20170819
  6. MESNA G.E.S 100MG/ML SOLUCION INYECTABLE Y PARA PERFUSION EFG , 15 AMP [Concomitant]
     Indication: PROPHYLAXIS
     Dosage: 100 MILLIGRAM DAILY;
     Route: 042
     Dates: start: 20170816, end: 20170818
  7. CICLOFOSFAMIDA (120A) [Suspect]
     Active Substance: CYCLOPHOSPHAMIDE
     Indication: ACUTE LYMPHOCYTIC LEUKAEMIA RECURRENT
     Route: 042
     Dates: start: 20170816, end: 20170818
  8. CITARABINA (124A) [Suspect]
     Active Substance: CYTARABINE
     Indication: ACUTE LYMPHOCYTIC LEUKAEMIA RECURRENT
     Dosage: 3100 MILLIGRAM DAILY;
     Route: 042
     Dates: start: 20170818, end: 20170819

REACTIONS (3)
  - Mucosal inflammation [Recovered/Resolved]
  - Pyrexia [Recovered/Resolved]
  - Pancytopenia [Recovered/Resolved]

NARRATIVE: CASE EVENT DATE: 20170823
